FAERS Safety Report 5328363-3 (Version None)
Quarter: 2007Q2

REPORT INFORMATION
  Report Type: 
  Country: None (occurrence: None)
  Receive Date: 20070515
  Receipt Date: 20070515
  Transmission Date: 20071010
  Serious: Yes (Hospitalization)
  Sender: FDA-Public Use
  Company Number: None

PATIENT
  Sex: Male
  Weight: 70 kg

DRUGS (2)
  1. DOXYCYCLINE [Suspect]
     Indication: SECONDARY SYPHILIS
     Dosage: 100 MG PO
     Route: 048
     Dates: start: 20070409, end: 20070423
  2. SEPTRA [Suspect]
     Indication: SECONDARY SYPHILIS
     Dates: start: 20070410, end: 20070423

REACTIONS (2)
  - SECONDARY SYPHILIS [None]
  - STEVENS-JOHNSON SYNDROME [None]
